FAERS Safety Report 19275265 (Version 3)
Quarter: 2021Q2

REPORT INFORMATION
  Report Type: Report from Study
  Country: IT (occurrence: IT)
  Receive Date: 20210519
  Receipt Date: 20210528
  Transmission Date: 20210717
  Serious: Yes (Life-Threatening)
  Sender: FDA-Public Use
  Company Number: IT-PFIZER INC-2021520824

PATIENT
  Age: 23 Year
  Sex: Male

DRUGS (2)
  1. EFFEXOR XR [Suspect]
     Active Substance: VENLAFAXINE HYDROCHLORIDE
     Dosage: 12 DF, SINGLE
     Route: 048
  2. VATRAN [Suspect]
     Active Substance: DIAZEPAM
     Dosage: 30 DF, SINGLE
     Route: 048

REACTIONS (8)
  - Psychomotor hyperactivity [Recovering/Resolving]
  - Oxygen saturation decreased [Recovering/Resolving]
  - Bradypnoea [Recovering/Resolving]
  - Feeling jittery [Recovering/Resolving]
  - Alcohol abuse [Recovering/Resolving]
  - Intentional self-injury [Recovering/Resolving]
  - Sopor [Recovering/Resolving]
  - Drug abuse [Recovering/Resolving]

NARRATIVE: CASE EVENT DATE: 20210502
